FAERS Safety Report 5979839-7 (Version None)
Quarter: 2008Q4

REPORT INFORMATION
  Report Type: 
  Country: None (occurrence: None)
  Receive Date: 20081126
  Receipt Date: 20081028
  Transmission Date: 20090506
  Serious: Yes (Life-Threatening)
  Sender: FDA-Public Use
  Company Number: 2008-186795-NL

PATIENT
  Sex: 0

DRUGS (1)
  1. MIRTAZAPINE [Suspect]

REACTIONS (2)
  - MUSCLE SPASMS [None]
  - OVERDOSE [None]
